FAERS Safety Report 8607542-3 (Version None)
Quarter: 2012Q3

REPORT INFORMATION
  Report Type: 
  Country: None (occurrence: None)
  Receive Date: 20120821
  Receipt Date: 20120810
  Transmission Date: 20120928
  Serious: Yes (Hospitalization)
  Sender: FDA-Public Use
  Company Number: US-BAYER-2012-032593

PATIENT
  Age: 18 Year
  Sex: Female
  Weight: 58.05 kg

DRUGS (8)
  1. YAZ [Suspect]
     Indication: MENORRHAGIA
  2. COMBIVENT [Concomitant]
     Indication: DYSPNOEA
     Dosage: 2 PUFF(S), Q4HR
  3. YAZ [Suspect]
     Indication: CONTRACEPTION
  4. YAZ [Suspect]
     Indication: ACNE
     Dosage: UNK UNK, QD
     Route: 048
     Dates: start: 20090901, end: 20100601
  5. ALBUTEROL [Concomitant]
     Indication: ASTHMA
     Dosage: 2 PUFF(S), Q4HR WHILE AWAKE
     Dates: start: 20100605
  6. NORCO [Concomitant]
     Indication: PAIN
     Dosage: UNK UNK, PRN
  7. TUSSIONEX [Concomitant]
     Indication: COUGH
  8. ZITHROMAX [Concomitant]
     Dosage: DAILY

REACTIONS (9)
  - ANXIETY [None]
  - PULMONARY EMBOLISM [None]
  - COUGH [None]
  - PAIN [None]
  - GENERAL PHYSICAL HEALTH DETERIORATION [None]
  - CHEST PAIN [None]
  - INSOMNIA [None]
  - INJURY [None]
  - EMOTIONAL DISTRESS [None]
